FAERS Safety Report 19918565 (Version 2)
Quarter: 2021Q4

REPORT INFORMATION
  Report Type: Report from Study
  Country: MY (occurrence: MY)
  Receive Date: 20211005
  Receipt Date: 20211121
  Transmission Date: 20220303
  Serious: Yes (Death)
  Sender: FDA-Public Use
  Company Number: MY-NOVARTISPH-NVSC2021MY222508

PATIENT
  Sex: Male

DRUGS (1)
  1. TASIGNA [Suspect]
     Active Substance: NILOTINIB
     Indication: Chronic myeloid leukaemia
     Dosage: 400 MG, BID
     Route: 065
     Dates: start: 20170821

REACTIONS (2)
  - Haemorrhagic stroke [Fatal]
  - Blast crisis in myelogenous leukaemia [Fatal]
